FAERS Safety Report 8016274-4 (Version None)
Quarter: 2011Q4

REPORT INFORMATION
  Report Type: 
  Country: None (occurrence: None)
  Receive Date: 20111227
  Receipt Date: 20111212
  Transmission Date: 20120403
  Serious: Yes (Hospitalization)
  Sender: FDA-Public Use
  Company Number: DSJ-2011-26616

PATIENT
  Age: 72 Year
  Sex: Female

DRUGS (5)
  1. PROPAFENONE (PROPAFENONE) (PROPAFENONE) [Concomitant]
  2. OMEPRAZOLE [Concomitant]
  3. INDAPAMIDE [Concomitant]
  4. ACETYLSALICYLIC ACID SRT [Concomitant]
  5. BENICAR HCT [Suspect]
     Indication: HYPERTENSION
     Dosage: 40/12.5MG (1 IN 1 D),PER ORAL
     Route: 048
     Dates: start: 20100101

REACTIONS (4)
  - DRUG INEFFECTIVE [None]
  - ARRHYTHMIA [None]
  - CONDITION AGGRAVATED [None]
  - BLOOD PRESSURE INCREASED [None]
